FAERS Safety Report 7907260-0 (Version None)
Quarter: 2011Q4

REPORT INFORMATION
  Report Type: 
  Country: None (occurrence: None)
  Receive Date: 20111110
  Receipt Date: 20111028
  Transmission Date: 20120403
  Serious: Yes (Hospitalization)
  Sender: FDA-Public Use
  Company Number: US-GLAXOSMITHKLINE-A0802173A

PATIENT
  Age: 50 Year
  Sex: Male

DRUGS (1)
  1. AVANDIA [Suspect]
     Indication: PRODUCT USED FOR UNKNOWN INDICATION
     Dosage: 8MG PER DAY
     Route: 048
     Dates: start: 20030603, end: 20060101

REACTIONS (4)
  - CARDIOMYOPATHY [None]
  - HYPERTENSION [None]
  - RENAL FAILURE [None]
  - SLEEP APNOEA SYNDROME [None]
